FAERS Safety Report 9678147 (Version 2)
Quarter: 2013Q4

REPORT INFORMATION
  Report Type: Spontaneous
  Country: GB (occurrence: GB)
  Receive Date: 20131108
  Receipt Date: 20131108
  Transmission Date: 20140711
  Serious: Yes (Other)
  Sender: FDA-Public Use
  Company Number: GB-009507513-1310GBR002278

PATIENT
  Age: 17 Year
  Sex: Female

DRUGS (10)
  1. NEXPLANON [Suspect]
     Indication: CONTRACEPTION
     Dosage: 3 YEARLY
     Route: 059
     Dates: start: 20130214, end: 20130613
  2. MICRONOR [Concomitant]
     Indication: CONTRACEPTION
     Dosage: UNK, QD
     Route: 048
     Dates: start: 20121108, end: 20130221
  3. OMEPRAZOLE [Concomitant]
     Indication: NAUSEA
     Dosage: 20 MG, QD
     Route: 048
     Dates: start: 20130322, end: 20130423
  4. DOMPERIDONE [Concomitant]
     Indication: NAUSEA
     Dosage: 10 MG, TID
     Route: 048
     Dates: start: 20130424, end: 20130604
  5. FLOXACILLIN [Concomitant]
     Indication: SKIN INFECTION
     Dosage: 500 MG, QID
     Route: 048
     Dates: start: 20130308, end: 20130315
  6. ZANTAC [Concomitant]
     Indication: NAUSEA
     Dosage: 150 MG, BID
     Route: 048
     Dates: start: 20130402, end: 20130424
  7. LANZOPRAZOL [Concomitant]
     Indication: DYSPEPSIA
     Dosage: 30 MG, QD
     Route: 048
     Dates: start: 20130523, end: 20130604
  8. PREGADAY [Concomitant]
     Dosage: UNK, QD
     Route: 048
  9. CANESTEN [Concomitant]
     Dosage: 500 MG, UNK
  10. FERROUS FUMARATE [Concomitant]
     Route: 048

REACTIONS (2)
  - Transfusion [Unknown]
  - Exposure during pregnancy [Recovered/Resolved]
